FAERS Safety Report 23499806 (Version 1)
Quarter: 2024Q1

REPORT INFORMATION
  Report Type: Spontaneous
  Country: HK (occurrence: HK)
  Receive Date: 20240208
  Receipt Date: 20240208
  Transmission Date: 20240409
  Serious: Yes (Other)
  Sender: FDA-Public Use
  Company Number: HK-STRIDES ARCOLAB LIMITED-2024SP001304

PATIENT
  Age: 42 Year
  Sex: Female

DRUGS (4)
  1. METHOXSALEN [Suspect]
     Active Substance: METHOXSALEN
     Indication: Supplementation therapy
     Dosage: UNKNOWN
     Route: 048
  2. HERBALS\VITAMINS [Suspect]
     Active Substance: HERBALS\VITAMINS
     Indication: Supplementation therapy
     Dosage: UNK (TRACES OF METHOXSALEN, AND UNSPECIFIED PSORALENS AND BENIGN HERBAL MARKERS WERE FOUND IN THIS S
     Route: 048
  3. QUETIAPINE [Concomitant]
     Active Substance: QUETIAPINE
     Indication: Product used for unknown indication
     Dosage: UNKNOWN
     Route: 065
  4. SERTRALINE [Concomitant]
     Active Substance: SERTRALINE HYDROCHLORIDE
     Indication: Product used for unknown indication
     Dosage: UNKNOWN
     Route: 065

REACTIONS (1)
  - Liver injury [Recovered/Resolved]
